FAERS Safety Report 8411565-7 (Version None)
Quarter: 2012Q2

REPORT INFORMATION
  Report Type: 
  Country: None (occurrence: None)
  Receive Date: 20120531
  Receipt Date: 20120531
  Transmission Date: 20120825
  Serious: No
  Sender: FDA-Public Use
  Company Number: None

PATIENT
  Sex: Male

DRUGS (1)
  1. METOPROLOL TARTRATE [Suspect]
     Dosage: 100 2XADAY ORAL
     Route: 048

REACTIONS (3)
  - CHEST PAIN [None]
  - PALPITATIONS [None]
  - FEELING JITTERY [None]
